FAERS Safety Report 18943491 (Version 1)
Quarter: 2021Q1

REPORT INFORMATION
  Report Type: Spontaneous
  Country: US (occurrence: US)
  Receive Date: 20210226
  Receipt Date: 20210226
  Transmission Date: 20210420
  Serious: No
  Sender: FDA-Public Use
  Company Number: US-BEH-2021128882

PATIENT
  Sex: Female

DRUGS (1)
  1. PRIVIGEN [Suspect]
     Active Substance: HUMAN IMMUNOGLOBULIN G
     Indication: PEMPHIGOID
     Dosage: 150 GRAM, QMT (28 DAYS)
     Route: 042
     Dates: start: 202010

REACTIONS (3)
  - Urinary tract infection [Unknown]
  - No adverse event [Unknown]
  - Off label use [Unknown]
